FAERS Safety Report 19225685 (Version 3)
Quarter: 2021Q3

REPORT INFORMATION
  Report Type: Spontaneous
  Country: US (occurrence: US)
  Receive Date: 20210506
  Receipt Date: 20210721
  Transmission Date: 20211014
  Serious: No
  Sender: FDA-Public Use
  Company Number: US-PFIZER INC-2021443715

PATIENT
  Age: 65 Year
  Sex: Female
  Weight: 56.25 kg

DRUGS (3)
  1. MAXALT [Concomitant]
     Active Substance: RIZATRIPTAN BENZOATE
     Indication: MIGRAINE
     Dosage: 10 MG
  2. ESTRING [Suspect]
     Active Substance: ESTRADIOL
     Indication: MENOPAUSAL SYMPTOMS
     Dosage: 2 MG
     Dates: start: 2017, end: 20210421
  3. PREDNISONE [PREDNISONE ACETATE] [Concomitant]
     Active Substance: PREDNISONE ACETATE
     Dosage: 20 MG (FOR 3 WEEKS)
     Dates: start: 2021, end: 20210419

REACTIONS (6)
  - Drug ineffective [Unknown]
  - Abdominal distension [Unknown]
  - Feeling abnormal [Unknown]
  - Nausea [Unknown]
  - Tremor [Unknown]
  - Headache [Unknown]

NARRATIVE: CASE EVENT DATE: 20210419
